FAERS Safety Report 5342095-7 (Version None)
Quarter: 2007Q2

REPORT INFORMATION
  Report Type: 
  Country: None (occurrence: None)
  Receive Date: 20070416
  Receipt Date: 20070302
  Transmission Date: 20071010
  Serious: No
  Sender: FDA-Public Use
  Company Number: 2007SP000757

PATIENT
  Age: 58 Year
  Sex: Male
  Weight: 79.3795 kg

DRUGS (15)
  1. LUNESTA [Suspect]
     Indication: SLEEP DISORDER
     Dosage: 3 MG;ORAL
     Route: 048
     Dates: start: 20061101, end: 20061101
  2. TOPROL-XL [Concomitant]
  3. ATACAND [Concomitant]
  4. SPIRONOLACTONE [Concomitant]
  5. QVAR 40 [Concomitant]
  6. PREVACID [Concomitant]
  7. FORMOTEROL FUMARATE [Concomitant]
  8. XOLAIR [Concomitant]
  9. PERCOCET [Concomitant]
  10. LYRICA [Concomitant]
  11. VALIUM [Concomitant]
  12. GLUTAMINE [Concomitant]
  13. WATER PILLS [Concomitant]
  14. WARFARIN SODIUM [Concomitant]
  15. AMBIEN [Concomitant]

REACTIONS (1)
  - DYSGEUSIA [None]
